FAERS Safety Report 9409726 (Version 1)
Quarter: 2013Q3

REPORT INFORMATION
  Report Type: Report from Study
  Country: AR (occurrence: AR)
  Receive Date: 20130719
  Receipt Date: 20130719
  Transmission Date: 20140515
  Serious: Yes (Other)
  Sender: FDA-Public Use
  Company Number: PHHY2013AR076670

PATIENT
  Age: 32 Year
  Sex: Female

DRUGS (5)
  1. TRILEPTAL [Suspect]
     Indication: COMPLEX PARTIAL SEIZURES
     Dosage: 300MG DAILY
     Route: 048
  2. TRILEPTAL [Suspect]
     Dosage: THREE TABLETS OF 600MG DAILY
     Route: 048
     Dates: start: 2012
  3. TRILEPTAL [Suspect]
     Dosage: 300MG DAILY
     Route: 048
     Dates: start: 2012
  4. TRILEPTAL [Suspect]
     Dosage: DOSE INCREASED DURING LACTATION
     Route: 048
  5. TRILEPTAL [Suspect]
     Dosage: THREE TABLETS OF 600MG DAILY
     Route: 048

REACTIONS (5)
  - Pre-eclampsia [Recovered/Resolved]
  - Proteinuria [Recovered/Resolved]
  - Epilepsy [Recovered/Resolved]
  - Exposure during pregnancy [Unknown]
  - Exposure during breast feeding [Unknown]
